FAERS Safety Report 8516514 (Version 3)
Quarter: 2014Q1

REPORT INFORMATION
  Report Type: Spontaneous
  Country: US (occurrence: US)
  Receive Date: 20120417
  Receipt Date: 20140128
  Transmission Date: 20141002
  Serious: Yes (Disabling)
  Sender: FDA-Public Use
  Company Number: US-ASTRAZENECA-2011SE41514

PATIENT
  Age: 60 Year
  Sex: Male
  Weight: 83.9 kg

DRUGS (22)
  1. NEXIUM [Suspect]
     Indication: GASTROOESOPHAGEAL REFLUX DISEASE
     Route: 048
     Dates: start: 2001
  2. NEXIUM [Suspect]
     Indication: GASTROOESOPHAGEAL REFLUX DISEASE
     Dosage: TWO TIMES DAILY FOR ABOUT THREE MONTHS AND THEN ONCE DAILY
     Route: 048
     Dates: start: 2005
  3. NEXIUM [Suspect]
     Indication: GASTROOESOPHAGEAL REFLUX DISEASE
     Route: 048
     Dates: start: 20090804
  4. PRILOSEC [Suspect]
     Route: 048
     Dates: start: 2000, end: 2005
  5. TUMS OTC [Concomitant]
     Dosage: DAILY
  6. OTC MEDS [Concomitant]
  7. TRAMADOL HCL [Concomitant]
     Dates: start: 20081126
  8. HYDROCODONE/APAP [Concomitant]
     Dosage: 10/500MG
     Dates: start: 20060724
  9. PREVACID [Concomitant]
     Dates: start: 20041118
  10. AMBIEN [Concomitant]
     Dates: start: 20050301
  11. TRAZODONE [Concomitant]
     Dates: start: 20050301
  12. CELEBREX [Concomitant]
     Dates: start: 20090409
  13. PROMETHAZINE [Concomitant]
  14. POTASSIUM CL [Concomitant]
     Dates: start: 20110930
  15. VITAMIN D 2 [Concomitant]
     Dates: start: 20110930
  16. PANTOPRAZOLE SODIUM [Concomitant]
     Dates: start: 20121010
  17. LEVOTHYROXINE [Concomitant]
     Dates: start: 20060425
  18. FUROSEMIDE [Concomitant]
     Dates: start: 20060724
  19. LIPITOR [Concomitant]
     Dates: start: 20060724
  20. COZAAR [Concomitant]
     Dates: start: 20060724
  21. BISOPROLOL FUMARATE [Concomitant]
     Dates: start: 20060817
  22. DIGOXINE [Concomitant]
     Dates: start: 20061001

REACTIONS (8)
  - Diabetes mellitus [Unknown]
  - Bone density decreased [Unknown]
  - Osteoporosis [Unknown]
  - Asthenia [Unknown]
  - Arthritis [Unknown]
  - Osteoarthritis [Unknown]
  - Bone disorder [Unknown]
  - Multiple fractures [Unknown]
